FAERS Safety Report 8460774 (Version 2)
Quarter: 2013Q1

REPORT INFORMATION
  Report Type: Spontaneous
  Country: FR (occurrence: None)
  Receive Date: 20120223
  Receipt Date: 20121207
  Transmission Date: 20140127
  Serious: Yes (Hospitalization)
  Sender: FDA-Public Use
  Company Number: 2012031187

PATIENT
  Age: 66 Year
  Sex: Male

DRUGS (3)
  1. PRIVIGEN [Suspect]
     Indication: PERIPHERAL SENSORIMOTOR NEUROPATHY
     Dosage: 40 G QD
     Route: 042
     Dates: start: 20120130, end: 20120203
  2. STAGID (METFORMIN EMBONATE) [Concomitant]
  3. IRBESARTAN [Concomitant]

REACTIONS (5)
  - Anaemia macrocytic [None]
  - Depression [None]
  - Haemolysis [None]
  - Asthenia [None]
  - Anxiety [None]
